FAERS Safety Report 10161383 (Version 8)
Quarter: 2015Q1

REPORT INFORMATION
  Report Type: Report from Study
  Country: CA (occurrence: CA)
  Receive Date: 20140509
  Receipt Date: 20150128
  Transmission Date: 20150720
  Serious: Yes (Other)
  Sender: FDA-Public Use
  Company Number: CA-ROCHE-1254549

PATIENT
  Age: 72 Year
  Sex: Female
  Weight: 67 kg

DRUGS (13)
  1. TYLENOL [Concomitant]
     Active Substance: ACETAMINOPHEN
     Route: 048
     Dates: start: 20130709
  2. EMEND [Concomitant]
     Active Substance: APREPITANT
  3. HERCEPTIN [Suspect]
     Active Substance: TRASTUZUMAB
     Route: 042
     Dates: start: 20130730
  4. BENADRYL [Suspect]
     Active Substance: DIPHENHYDRAMINE HYDROCHLORIDE
     Indication: PRODUCT USED FOR UNKNOWN INDICATION
     Route: 048
     Dates: start: 20130709
  5. DEXAMETHASON [Concomitant]
     Active Substance: DEXAMETHASONE
  6. ADVAIR HFA [Concomitant]
     Active Substance: FLUTICASONE PROPIONATE\SALMETEROL XINAFOATE
     Route: 065
  7. HERCEPTIN [Suspect]
     Active Substance: TRASTUZUMAB
     Indication: UTERINE CANCER
     Dosage: FREQUENCY : 3 WEEKS
     Route: 042
     Dates: start: 20130709
  8. CARBOPLATIN. [Suspect]
     Active Substance: CARBOPLATIN
     Indication: UTERINE CANCER
     Route: 042
     Dates: start: 201304
  9. CETIRIZINE [Concomitant]
     Active Substance: CETIRIZINE HYDROCHLORIDE
  10. RITUXAN [Concomitant]
     Active Substance: RITUXIMAB
     Dosage: DATE OF LAST INFUSION: 07/JAN/2015
     Route: 065
  11. NUTROPIN [Suspect]
     Active Substance: SOMATROPIN
     Indication: WHITE BLOOD CELL COUNT DECREASED
     Route: 065
     Dates: start: 20130720
  12. TAXOL [Suspect]
     Active Substance: PACLITAXEL
     Indication: UTERINE CANCER
     Route: 042
     Dates: start: 201304
  13. BENADRYL [Suspect]
     Active Substance: DIPHENHYDRAMINE HYDROCHLORIDE
     Route: 048
     Dates: start: 20140225

REACTIONS (15)
  - Fatigue [Not Recovered/Not Resolved]
  - Oral herpes [Recovering/Resolving]
  - Nasopharyngitis [Recovered/Resolved]
  - Seasonal allergy [Recovering/Resolving]
  - Rash [Unknown]
  - Anaemia [Unknown]
  - Off label use [Unknown]
  - Back pain [Not Recovered/Not Resolved]
  - Fatigue [Unknown]
  - Oral herpes [Not Recovered/Not Resolved]
  - Neuralgia [Not Recovered/Not Resolved]
  - White blood cell count decreased [Unknown]
  - Dizziness [Unknown]
  - Dyspnoea [Unknown]
  - Fatigue [Unknown]

NARRATIVE: CASE EVENT DATE: 201307
